FAERS Safety Report 8517036-1 (Version None)
Quarter: 2012Q3

REPORT INFORMATION
  Report Type: 
  Country: None (occurrence: None)
  Receive Date: 20120706
  Receipt Date: 20120625
  Transmission Date: 20120928
  Serious: Yes (Life-Threatening, Hospitalization, Other)
  Sender: FDA-Public Use
  Company Number: 2012P1045958

PATIENT
  Age: 30 Year
  Sex: Female

DRUGS (3)
  1. METHIMAZOLE [Suspect]
     Indication: BASEDOW'S DISEASE
     Dosage: 30 MG, QD, PO
     Route: 048
  2. ESTROGEN REPLACEMENT THERAPY [Concomitant]
  3. CAPTOPRIL [Suspect]
     Indication: HYPERTENSION
     Dosage: 75 MG, QD

REACTIONS (4)
  - PREMATURE MENOPAUSE [None]
  - INSULIN AUTOIMMUNE SYNDROME [None]
  - HYPOGLYCAEMIA [None]
  - HYPERTENSION [None]
